FAERS Safety Report 8480254 (Version 4)
Quarter: 2013Q2

REPORT INFORMATION
  Report Type: Report from Study
  Country: IT (occurrence: IT)
  Receive Date: 20120328
  Receipt Date: 20130523
  Transmission Date: 20140414
  Serious: Yes (Hospitalization)
  Sender: FDA-Public Use
  Company Number: IT-ROCHE-1049160

PATIENT
  Age: 53 Year
  Sex: Male

DRUGS (7)
  1. VEMURAFENIB [Suspect]
     Indication: PAPILLARY THYROID CANCER
     Dosage: LAST DOSE PRIOR TO SAE WAS ON 06/MAR/2012
     Route: 048
     Dates: start: 20120301, end: 20120307
  2. LEVOTIROXINA [Concomitant]
     Route: 048
     Dates: start: 20080529
  3. PANTOPRAZOL [Concomitant]
     Indication: PROPHYLAXIS
     Route: 048
     Dates: start: 201201
  4. CHOLECALCIFEROL [Concomitant]
     Indication: VITAMIN D DECREASED
     Route: 048
     Dates: start: 201107
  5. DALTEPARIN [Concomitant]
     Indication: PULMONARY EMBOLISM
     Route: 058
     Dates: start: 20120124, end: 20120224
  6. DALTEPARIN [Concomitant]
     Route: 058
     Dates: start: 20120225
  7. DEXAMETHASONE [Concomitant]
     Dosage: 16 DROPS
     Route: 048
     Dates: start: 201111

REACTIONS (2)
  - Amylase increased [Recovered/Resolved]
  - Lipase increased [Recovered/Resolved]
